FAERS Safety Report 7819490-7 (Version None)
Quarter: 2011Q4

REPORT INFORMATION
  Report Type: 
  Country: None (occurrence: None)
  Receive Date: 20111018
  Receipt Date: 20110801
  Transmission Date: 20120403
  Serious: No
  Sender: FDA-Public Use
  Company Number: US-ASTRAZENECA-2011SE35759

PATIENT
  Age: 56 Year
  Sex: Female

DRUGS (2)
  1. SYMBICORT [Suspect]
     Dosage: 160/4.5, ONE PUFF TWICE DAILY
     Route: 055
     Dates: start: 20070101
  2. SYMBICORT [Suspect]
     Dosage: 160/4.5, TWO PUFFS TWICE DAILY
     Route: 055

REACTIONS (4)
  - DYSPNOEA [None]
  - EMPHYSEMA [None]
  - INAPPROPRIATE SCHEDULE OF DRUG ADMINISTRATION [None]
  - DRUG DOSE OMISSION [None]
